FAERS Safety Report 16596736 (Version 1)
Quarter: 2019Q3

REPORT INFORMATION
  Report Type: Spontaneous
  Country: US (occurrence: US)
  Receive Date: 20190718
  Receipt Date: 20190718
  Transmission Date: 20191004
  Serious: Yes (Other)
  Sender: FDA-Public Use
  Company Number: None

PATIENT
  Age: 32 Year
  Sex: Male
  Weight: 80.1 kg

DRUGS (5)
  1. CARAFATE [Concomitant]
     Active Substance: SUCRALFATE
  2. TUMS [Concomitant]
     Active Substance: CALCIUM CARBONATE
  3. BENTYL [Concomitant]
     Active Substance: DICYCLOMINE HYDROCHLORIDE
  4. XARELTO [Suspect]
     Active Substance: RIVAROXABAN
     Indication: DEEP VEIN THROMBOSIS
     Route: 048
     Dates: start: 20190526
  5. PANTAPRAZOLE [Concomitant]
     Active Substance: PANTOPRAZOLE SODIUM

REACTIONS (8)
  - Abdominal pain upper [None]
  - Oropharyngeal discomfort [None]
  - Gastrooesophageal reflux disease [None]
  - Chills [None]
  - Diarrhoea [None]
  - Heart rate increased [None]
  - Hyperhidrosis [None]
  - Melaena [None]

NARRATIVE: CASE EVENT DATE: 20190702
